FAERS Safety Report 7531370-3 (Version None)
Quarter: 2011Q2

REPORT INFORMATION
  Report Type: 
  Country: None (occurrence: None)
  Receive Date: 20110608
  Receipt Date: 20110525
  Transmission Date: 20111010
  Serious: Yes (Other)
  Sender: FDA-Public Use
  Company Number: PHHY2011CA46076

PATIENT
  Sex: Female

DRUGS (3)
  1. ZOLEDRONIC ACID [Suspect]
     Dosage: 5 MG,
     Route: 042
     Dates: start: 20100520
  2. ZOLEDRONIC ACID [Suspect]
     Indication: OSTEOPOROSIS
     Dosage: 5 MG,
     Route: 042
     Dates: start: 20090513
  3. ZOLEDRONIC ACID [Suspect]
     Dosage: 5 MG,
     Route: 042
     Dates: start: 20110525

REACTIONS (1)
  - STRESS FRACTURE [None]
